FAERS Safety Report 18615180 (Version 5)
Quarter: 2021Q3

REPORT INFORMATION
  Report Type: Report from Study
  Country: BR (occurrence: BR)
  Receive Date: 20201214
  Receipt Date: 20210817
  Transmission Date: 20211014
  Serious: Yes (Other)
  Sender: FDA-Public Use
  Company Number: BR-TAKEDA-2020TUS056161

PATIENT
  Sex: Male
  Weight: 62 kg

DRUGS (3)
  1. FACTOR VIII INHIBITOR BYPASSING FRACTION; BAXJECT II NF [Suspect]
     Active Substance: ANTI-INHIBITOR COAGULANT COMPLEX
     Indication: PRODUCT USED FOR UNKNOWN INDICATION
     Dosage: 2500 INTERNATIONAL UNIT, 3/WEEK
     Route: 042
     Dates: start: 20040309
  2. FACTOR VIII INHIBITOR BYPASSING FRACTION; BAXJECT II NF [Suspect]
     Active Substance: ANTI-INHIBITOR COAGULANT COMPLEX
     Dosage: 3000 INTERNATIONAL UNIT, 3/WEEK
     Route: 042
     Dates: start: 20040309
  3. FACTOR VIII INHIBITOR BYPASSING FRACTION; BAXJECT II NF [Suspect]
     Active Substance: ANTI-INHIBITOR COAGULANT COMPLEX
     Dosage: 2000 INTERNATIONAL UNIT, 1/WEEK
     Route: 042

REACTIONS (14)
  - Gait inability [Unknown]
  - Tooth fracture [Unknown]
  - Agitation [Not Recovered/Not Resolved]
  - Gingival bleeding [Recovered/Resolved]
  - Hepatic steatosis [Unknown]
  - Drug ineffective [Unknown]
  - Mental disorder [Not Recovered/Not Resolved]
  - Internal haemorrhage [Unknown]
  - Renal cyst [Unknown]
  - Hypoaesthesia [Unknown]
  - Off label use [Unknown]
  - Neuropathy peripheral [Unknown]
  - Peripheral swelling [Unknown]
  - Unevaluable event [Not Recovered/Not Resolved]
